FAERS Safety Report 8538820-4 (Version None)
Quarter: 2012Q3

REPORT INFORMATION
  Report Type: 
  Country: None (occurrence: None)
  Receive Date: 20120711
  Receipt Date: 20120709
  Transmission Date: 20120928
  Serious: Yes (Other)
  Sender: FDA-Public Use
  Company Number: 0218608

PATIENT
  Age: 36 Year
  Sex: Male

DRUGS (1)
  1. TACHOSIL [Suspect]
     Indication: PRODUCT USED FOR UNKNOWN INDICATION
     Dosage: 2 FLEECES: 1 ON DORSAL SIDE, 1 ON VENTRAL SIDE
     Dates: start: 20100519, end: 20100519

REACTIONS (3)
  - NECROSIS [None]
  - FIBROSIS [None]
  - FOREIGN BODY REACTION [None]
